FAERS Safety Report 15596170 (Version 1)
Quarter: 2018Q4

REPORT INFORMATION
  Report Type: Spontaneous
  Country: JP (occurrence: JP)
  Receive Date: 20181107
  Receipt Date: 20181107
  Transmission Date: 20190205
  Serious: Yes (Life-Threatening, Other)
  Sender: FDA-Public Use
  Company Number: JP-CELGENEUS-JPN-2016043062

PATIENT
  Age: 71 Year
  Sex: Male

DRUGS (2)
  1. ABRAXANE [Suspect]
     Active Substance: PACLITAXEL
     Indication: GASTRIC CANCER
     Dosage: 260 MILLIGRAM/SQ. METER
     Route: 041
  2. PACLITAXEL. [Concomitant]
     Active Substance: PACLITAXEL
     Indication: PRODUCT USED FOR UNKNOWN INDICATION
     Dosage: 80 MILLIGRAM/SQ. METER
     Route: 065

REACTIONS (7)
  - Peripheral sensory neuropathy [Recovering/Resolving]
  - Neutropenia [Recovering/Resolving]
  - Therapy non-responder [Unknown]
  - Decreased appetite [Recovering/Resolving]
  - Stomatitis [Recovering/Resolving]
  - Myalgia [Recovering/Resolving]
  - Constipation [Recovering/Resolving]
